FAERS Safety Report 7151553-4 (Version None)
Quarter: 2010Q4

REPORT INFORMATION
  Report Type: 
  Country: None (occurrence: None)
  Receive Date: 20101210
  Receipt Date: 20101202
  Transmission Date: 20110411
  Serious: Yes (Life-Threatening, Hospitalization, Other)
  Sender: FDA-Public Use
  Company Number: GB-ABBOTT-10P-167-0666121-00

PATIENT
  Sex: Female
  Weight: 80 kg

DRUGS (3)
  1. SIBUTRAMINE HYDROCHLORIDE MONOHYDRATE [Suspect]
     Indication: WEIGHT CONTROL
     Route: 048
     Dates: start: 20090612, end: 20090812
  2. SIBUTRAMINE HYDROCHLORIDE MONOHYDRATE [Suspect]
     Dates: start: 20090812, end: 20100126
  3. MICRONOR [Concomitant]
     Indication: CONTRACEPTION
     Route: 048
     Dates: start: 20090518

REACTIONS (3)
  - MALAISE [None]
  - RENAL FAILURE ACUTE [None]
  - TUBULOINTERSTITIAL NEPHRITIS [None]
